FAERS Safety Report 6764994-1 (Version None)
Quarter: 2010Q2

REPORT INFORMATION
  Report Type: 
  Country: None (occurrence: None)
  Receive Date: 20100609
  Receipt Date: 20100504
  Transmission Date: 20101027
  Serious: No
  Sender: FDA-Public Use
  Company Number: 2010011056

PATIENT
  Age: 4 Year
  Sex: Male
  Weight: 20.8655 kg

DRUGS (3)
  1. CHILDREN'S ZYRTEC ALLERGY [Suspect]
     Indication: HYPERSENSITIVITY
     Dosage: 2 TEASPOONFULS A FEW TIMES PER WEEK ORAL
     Route: 048
     Dates: end: 20100429
  2. CHILDREN'S BENADRYL ALLERGY [Suspect]
     Indication: GROWING PAINS
     Dosage: 2 TEASPOONSFUL A FEW TIMES PER WEEK ORAL
     Route: 048
     Dates: end: 20100429
  3. IBUPROFEN [Suspect]
     Indication: GROWING PAINS
     Dosage: 2 TEASPOONS A FEW TIMES PER WEEK ORAL
     Route: 048
     Dates: end: 20100429

REACTIONS (3)
  - DIZZINESS [None]
  - OFF LABEL USE [None]
  - PRODUCT QUALITY ISSUE [None]
